FAERS Safety Report 14383010 (Version 2)
Quarter: 2018Q1

REPORT INFORMATION
  Report Type: Report from Study
  Country: AT (occurrence: AT)
  Receive Date: 20180114
  Receipt Date: 20180122
  Transmission Date: 20180509
  Serious: Yes (Death, Hospitalization, Other)
  Sender: FDA-Public Use
  Company Number: PHHY2017AT003609

PATIENT
  Age: 32 Year
  Sex: Female
  Weight: 53 kg

DRUGS (22)
  1. DUROGESIC [Concomitant]
     Active Substance: FENTANYL
     Indication: PAIN
     Dosage: 25 U/H, EVERY THIRD DAY
     Route: 065
     Dates: start: 20161111, end: 20170208
  2. FORTECORTIN [Concomitant]
     Active Substance: DEXAMETHASONE
     Dosage: 8 MG, UNK
     Route: 065
     Dates: start: 20161117, end: 20161117
  3. PANTOLOC [Concomitant]
     Active Substance: PANTOPRAZOLE SODIUM
     Indication: GASTRIC DISORDER
     Dosage: 80 MG, QD
     Route: 065
     Dates: start: 20161114
  4. MOLAXOLE [Concomitant]
     Active Substance: POLYETHYLENE GLYCOL 3350\POTASSIUM CHLORIDE\SODIUM BICARBONATE\SODIUM CHLORIDE
     Indication: GASTROINTESTINAL DISORDER
     Dosage: 1 DF, QD
     Route: 065
     Dates: start: 20161110
  5. NAPROBENE [Concomitant]
     Indication: PYREXIA
     Dosage: UNK, PRN
     Route: 065
     Dates: start: 201701
  6. MEKINIST [Suspect]
     Active Substance: TRAMETINIB DIMETHYL SULFOXIDE
     Indication: METASTATIC MALIGNANT MELANOMA
     Dosage: 2 MG, QD
     Route: 048
     Dates: start: 20161115, end: 20170526
  7. FORTECORTIN [Concomitant]
     Active Substance: DEXAMETHASONE
     Dosage: 4 MG, UNK
     Route: 065
     Dates: start: 20161118
  8. NOVALGIN (METAMIZOLE SODIUM) [Concomitant]
     Active Substance: METAMIZOLE SODIUM
     Dosage: UNK
     Route: 065
     Dates: start: 20161222, end: 20161226
  9. FRAGMIN [Concomitant]
     Active Substance: DALTEPARIN SODIUM
     Indication: PROPHYLAXIS
     Dosage: 5000 IE, QD
     Route: 065
     Dates: start: 20161113, end: 20161117
  10. HYDAL [Concomitant]
     Active Substance: HYDROMORPHONE HYDROCHLORIDE
     Indication: PAIN
     Dosage: 2.6 MG, PRN
     Route: 065
     Dates: start: 20161210
  11. METFORMIN [Concomitant]
     Active Substance: METFORMIN HYDROCHLORIDE
     Indication: BLOOD GLUCOSE INCREASED
     Dosage: 500 MG, QD
     Route: 065
     Dates: start: 20161201, end: 20161209
  12. NAPROBENE [Concomitant]
     Indication: PAIN
     Dosage: 1000 MG, QD
     Route: 065
     Dates: start: 20161226, end: 201701
  13. KEYTRUDA [Concomitant]
     Active Substance: PEMBROLIZUMAB
     Indication: METASTATIC MALIGNANT MELANOMA
     Dosage: 150 MG, TID
     Route: 065
     Dates: start: 20161229
  14. TEMESTA (LORAZEPAM) [Concomitant]
     Active Substance: LORAZEPAM
     Indication: INSOMNIA
     Dosage: 1 MG, QD
     Route: 065
     Dates: start: 20170209
  15. FORTECORTIN [Concomitant]
     Active Substance: DEXAMETHASONE
     Indication: PROPHYLAXIS
     Dosage: 8 MG, BID
     Route: 065
     Dates: start: 20161114, end: 20161116
  16. XGEVA [Concomitant]
     Active Substance: DENOSUMAB
     Indication: METASTASES TO BONE
     Dosage: UNK
     Route: 065
     Dates: start: 20161113
  17. BUSCOPAN [Concomitant]
     Active Substance: BUTYLSCOPOLAMINE BROMIDE
     Indication: PAIN
     Dosage: 20 ML, QD (1AMG AD 100ML)
     Route: 065
     Dates: start: 20161110, end: 20161116
  18. IVADAL [Concomitant]
     Active Substance: ZOLPIDEM TARTRATE
     Indication: PAIN
     Dosage: 10 MG, PRN
     Route: 065
     Dates: start: 20161116
  19. DABRAFENIB [Suspect]
     Active Substance: DABRAFENIB
     Indication: METASTATIC MALIGNANT MELANOMA
     Dosage: 300 MG, QD
     Route: 048
     Dates: start: 20161111, end: 20170526
  20. NOVALGIN (METAMIZOLE SODIUM) [Concomitant]
     Active Substance: METAMIZOLE SODIUM
     Indication: PAIN
     Dosage: 1 DF, QD (1G AD 100MLNACL INFUSION /DAY)
     Route: 065
     Dates: start: 20161110, end: 20161115
  21. VENDAL [Concomitant]
     Active Substance: MORPHINE HYDROCHLORIDE
     Indication: PAIN
     Dosage: 10 MG, PRN
     Route: 065
     Dates: start: 20161110
  22. EFFORTIL [Concomitant]
     Active Substance: ETILEFRINE HYDROCHLORIDE
     Indication: HYPOTONIA
     Dosage: UNK
     Route: 065
     Dates: start: 201701

REACTIONS (32)
  - Pyrexia [Recovered/Resolved]
  - Pyrexia [Recovered/Resolved]
  - Chills [Recovered/Resolved]
  - Dry mouth [Recovering/Resolving]
  - Interleukin level increased [Unknown]
  - Blood sodium decreased [Recovered/Resolved]
  - Oral herpes [Recovered/Resolved]
  - General physical health deterioration [Recovered/Resolved]
  - Blood lactate dehydrogenase increased [Not Recovered/Not Resolved]
  - Abdominal pain upper [Recovered/Resolved]
  - Muscle spasms [Recovered/Resolved]
  - Hypokalaemia [Recovered/Resolved]
  - Pyrexia [Recovered/Resolved]
  - Nausea [Recovered/Resolved]
  - C-reactive protein increased [Recovering/Resolving]
  - Blood folate decreased [Fatal]
  - Skin irritation [Recovered/Resolved]
  - White blood cell count decreased [Unknown]
  - Sleep disorder [Recovered/Resolved]
  - Hepatic enzyme increased [Recovered/Resolved]
  - Insomnia [Recovered/Resolved]
  - Dry mouth [Recovered/Resolved]
  - Hyperthyroidism [Fatal]
  - Pyrexia [Recovered/Resolved]
  - Dry mouth [Recovered/Resolved]
  - Aspartate aminotransferase increased [Not Recovered/Not Resolved]
  - Constipation [Fatal]
  - Fatigue [Fatal]
  - Pyrexia [Recovered/Resolved]
  - Weight decreased [Recovered/Resolved]
  - Headache [Recovered/Resolved]
  - Hypothyroidism [Recovered/Resolved]

NARRATIVE: CASE EVENT DATE: 20161124
